FAERS Safety Report 7481370-7 (Version None)
Quarter: 2011Q2

REPORT INFORMATION
  Report Type: 
  Country: None (occurrence: None)
  Receive Date: 20110516
  Receipt Date: 20110429
  Transmission Date: 20111010
  Serious: No
  Sender: FDA-Public Use
  Company Number: US-B.I. PHARMACEUTICALS,INC./RIDGEFIELD-2011-BP-12170BP

PATIENT
  Age: 81 Year
  Sex: Male

DRUGS (9)
  1. METFORMIN HCL [Concomitant]
     Indication: DIABETES MELLITUS
     Route: 048
     Dates: start: 20110101
  2. ACETAMINOPHEN [Concomitant]
     Indication: ARTHRITIS
     Dosage: 500 MG
     Route: 048
     Dates: start: 20030101
  3. SPIRIVA [Suspect]
     Indication: CHRONIC OBSTRUCTIVE PULMONARY DISEASE
     Dosage: 18 MCG
     Route: 055
     Dates: start: 20110407
  4. MELPHALAN HYDROCHLORIDE [Concomitant]
     Indication: POLYMYALGIA RHEUMATICA
     Dosage: 7 MG
     Route: 048
     Dates: start: 20030101
  5. GABAPENTIN [Concomitant]
     Indication: NEUROPATHY PERIPHERAL
     Route: 048
     Dates: start: 20090101
  6. HYDROCODONE BITARTRATE [Concomitant]
     Indication: ARTHRITIS
     Dosage: 5 MG
     Route: 048
     Dates: start: 20030101
  7. LISINOPRIL [Concomitant]
     Indication: HYPERTENSION
     Dosage: 30 MG
     Route: 048
     Dates: start: 20030101
  8. FINASTERIDE [Concomitant]
     Indication: PROSTATOMEGALY
     Route: 048
     Dates: start: 20090101
  9. AMLODIPINE BESYLATE [Concomitant]
     Indication: HYPERTENSION
     Route: 048
     Dates: start: 20030101

REACTIONS (5)
  - URINE OUTPUT INCREASED [None]
  - EYE PAIN [None]
  - VISION BLURRED [None]
  - CONSTIPATION [None]
  - DIARRHOEA [None]
